FAERS Safety Report 12237128 (Version 1)
Quarter: 2016Q2

REPORT INFORMATION
  Report Type: Spontaneous
  Country: US (occurrence: US)
  Receive Date: 20160405
  Receipt Date: 20160405
  Transmission Date: 20160815
  Serious: No
  Sender: FDA-Public Use
  Company Number: US-BAYER-2016-055647

PATIENT
  Age: 83 Year
  Sex: Female
  Weight: 51.7 kg

DRUGS (3)
  1. SINGULAIR [Concomitant]
     Active Substance: MONTELUKAST SODIUM
  2. MIRALAX [Suspect]
     Active Substance: POLYETHYLENE GLYCOL 3350
     Dosage: 1 DF, PRN
     Route: 048
  3. EVISTA [RALOXIFENE HYDROCHLORIDE] [Concomitant]

REACTIONS (4)
  - Bowel movement irregularity [None]
  - Expired product administered [None]
  - Product use issue [None]
  - Abdominal discomfort [None]

NARRATIVE: CASE EVENT DATE: 20160315
